FAERS Safety Report 7669655-2 (Version None)
Quarter: 2011Q3

REPORT INFORMATION
  Report Type: 
  Country: None (occurrence: None)
  Receive Date: 20110808
  Receipt Date: 20110727
  Transmission Date: 20111222
  Serious: Yes (Hospitalization, Other)
  Sender: FDA-Public Use
  Company Number: PHHY2011BR68231

PATIENT
  Sex: Female

DRUGS (5)
  1. APRESOLINE [Suspect]
     Dosage: 3 DF, UNK
  2. DIOVAN [Suspect]
     Dosage: 2 DF, UNK
  3. SUSTRATE [Concomitant]
     Dosage: 3 DF, UNK
  4. APRESOLINE [Suspect]
     Dosage: 1 DF, UNK
  5. BISOPROLOL FUMARATE [Concomitant]
     Dosage: 1 TABLET AT NIGHT

REACTIONS (4)
  - PULMONARY EMBOLISM [None]
  - THYROID CANCER [None]
  - BLOOD PRESSURE INCREASED [None]
  - PERICARDIAL EFFUSION [None]
